FAERS Safety Report 5029256-1 (Version None)
Quarter: 2006Q2

REPORT INFORMATION
  Report Type: 
  Country: None (occurrence: None)
  Receive Date: 20060613
  Receipt Date: 20060530
  Transmission Date: 20061013
  Serious: Yes (Hospitalization, Other)
  Sender: FDA-Public Use
  Company Number: USA-2006-0024118

PATIENT
  Age: 49 Year
  Sex: Female

DRUGS (19)
  1. OXYCODONE HCL [Suspect]
     Indication: BREAKTHROUGH PAIN
     Dosage: 40 MG, ORAL
     Route: 048
     Dates: start: 20060306, end: 20060308
  2. PROCRIT [Suspect]
  3. SENOKOT-S (DOCUSATE SODIUM SENNOSIDE A+B) [Concomitant]
  4. NEURONTIN [Concomitant]
  5. NIFEREX (POLYSACCHARIDE-IRON COMPLEX) [Concomitant]
  6. PERCOCET-5 (OXYCODONE TEREPHTHALATE) [Concomitant]
  7. FLEXERIL [Concomitant]
  8. DILAUDID [Concomitant]
  9. CALCIUM GLUCONATE [Concomitant]
  10. ZELNORM [Concomitant]
  11. IRON (IRON) [Concomitant]
  12. PAXIL [Concomitant]
  13. XANAX [Concomitant]
  14. FENTANYL [Concomitant]
  15. ACETAMINOPHEN [Concomitant]
  16. ACETAMINOPHEN AND OXYCODONE HCL [Concomitant]
  17. MAGNESIUM CITRATE [Concomitant]
  18. FLEET ENEMA (SODIUM PHOSPHATE DIBASIC, SODIUM PHOSPHATE) [Concomitant]
  19. METOCLOPRAMIDE [Concomitant]

REACTIONS (18)
  - ABDOMINAL DISTENSION [None]
  - ABDOMINAL REBOUND TENDERNESS [None]
  - ALANINE AMINOTRANSFERASE INCREASED [None]
  - ASPARTATE AMINOTRANSFERASE INCREASED [None]
  - ATELECTASIS [None]
  - BLOOD AMYLASE DECREASED [None]
  - BOWEL SOUNDS ABNORMAL [None]
  - CONDITION AGGRAVATED [None]
  - CONSTIPATION [None]
  - DIVERTICULITIS [None]
  - HAEMOGLOBIN DECREASED [None]
  - INTESTINAL OBSTRUCTION [None]
  - IRRITABLE BOWEL SYNDROME [None]
  - PELVIC FLUID COLLECTION [None]
  - PLEURAL EFFUSION [None]
  - POSTOPERATIVE ILEUS [None]
  - WHITE BLOOD CELL COUNT INCREASED [None]
  - WHITE BLOOD CELLS URINE POSITIVE [None]
